FAERS Safety Report 7134223-8 (Version None)
Quarter: 2010Q4

REPORT INFORMATION
  Report Type: 
  Country: None (occurrence: None)
  Receive Date: 20101203
  Receipt Date: 20101124
  Transmission Date: 20110411
  Serious: Yes (Hospitalization)
  Sender: FDA-Public Use
  Company Number: FR-ASTRAZENECA-2010SE56142

PATIENT
  Age: 55 Year
  Sex: Male

DRUGS (10)
  1. NEXIUM [Suspect]
     Route: 048
     Dates: end: 20100923
  2. ZYLORIC [Concomitant]
     Dates: end: 20100917
  3. BUFLOMEDIL [Concomitant]
     Dates: end: 20100917
  4. IXPRIM [Concomitant]
     Dates: end: 20100917
  5. ALPRAZOLAM [Concomitant]
     Dates: end: 20100917
  6. NOCTRAN [Concomitant]
     Dates: end: 20100917
  7. EUROBIOL [Concomitant]
     Dates: end: 20100917
  8. HEPARIN [Concomitant]
     Dates: end: 20100923
  9. DIGOXINE [Concomitant]
     Dates: end: 20100923
  10. LASILIX [Concomitant]
     Dates: end: 20100923

REACTIONS (3)
  - CELL DEATH [None]
  - CHOLESTASIS [None]
  - LIVER INJURY [None]
